FAERS Safety Report 7619900-4 (Version None)
Quarter: 2011Q3

REPORT INFORMATION
  Report Type: 
  Country: None (occurrence: None)
  Receive Date: 20110719
  Receipt Date: 20110713
  Transmission Date: 20111222
  Serious: Yes (Other)
  Sender: FDA-Public Use
  Company Number: GB-ELI_LILLY_AND_COMPANY-GB201107003426

PATIENT
  Age: 79 Year
  Sex: Female
  Weight: 100 kg

DRUGS (11)
  1. BYETTA [Suspect]
     Dosage: 5 UG, UNKNOWN
     Route: 058
     Dates: start: 20110703, end: 20110705
  2. GLICLAZIDE [Concomitant]
  3. FUROSEMIDE [Concomitant]
  4. PIOGLITAZONE HCL [Concomitant]
  5. METFORMIN HCL [Concomitant]
  6. QUININE SULFATE [Concomitant]
  7. OMEPRAZOLE [Concomitant]
  8. RAMIPRIL [Concomitant]
  9. ASPIRIN                                 /USA/ [Concomitant]
  10. SPIRONOLACTONE [Concomitant]
  11. DILTIAZEM [Concomitant]

REACTIONS (4)
  - DIARRHOEA [None]
  - VOMITING [None]
  - NAUSEA [None]
  - DIABETES MELLITUS INADEQUATE CONTROL [None]
